FAERS Safety Report 6313563-6 (Version None)
Quarter: 2009Q3

REPORT INFORMATION
  Report Type: 
  Country: None (occurrence: None)
  Receive Date: 20090818
  Receipt Date: 20090806
  Transmission Date: 20100115
  Serious: Yes (Hospitalization, Other)
  Sender: FDA-Public Use
  Company Number: GB-SANOFI-SYNTHELABO-A01200907883

PATIENT
  Sex: Female

DRUGS (4)
  1. CAPECITABINE [Concomitant]
     Indication: ADENOCARCINOMA
  2. DEXTROSE 5% [Suspect]
     Indication: DRUG USE FOR UNKNOWN INDICATION
     Dosage: 500 ML
     Route: 041
     Dates: start: 20090702, end: 20090702
  3. EPIRUBICIN [Suspect]
     Indication: ADENOCARCINOMA
     Route: 041
     Dates: start: 20090702, end: 20090702
  4. ELOXATIN [Suspect]
     Indication: ADENOCARCINOMA
     Dosage: 254.8 MG
     Route: 041
     Dates: start: 20090702, end: 20090702

REACTIONS (6)
  - C-REACTIVE PROTEIN INCREASED [None]
  - FATIGUE [None]
  - PYREXIA [None]
  - SEPSIS [None]
  - SHOCK [None]
  - VOMITING [None]
